FAERS Safety Report 18804624 (Version 1)
Quarter: 2021Q1

REPORT INFORMATION
  Report Type: Spontaneous
  Country: US (occurrence: US)
  Receive Date: 20210129
  Receipt Date: 20210129
  Transmission Date: 20210419
  Serious: No
  Sender: FDA-Public Use
  Company Number: US-UCBSA-2020050612

PATIENT

DRUGS (2)
  1. KEPPRA [Suspect]
     Active Substance: LEVETIRACETAM
     Indication: SEIZURE
     Dosage: 7.5 MILLILITER, 3X/DAY (TID)
  2. VIMPAT [Suspect]
     Active Substance: LACOSAMIDE
     Indication: SEIZURE
     Dosage: 5 MILLILITER, 2X/DAY (BID)

REACTIONS (3)
  - Inappropriate schedule of product administration [Unknown]
  - Seizure [Unknown]
  - Product availability issue [Unknown]
